FAERS Safety Report 8334453-3 (Version None)
Quarter: 2012Q2

REPORT INFORMATION
  Report Type: 
  Country: None (occurrence: None)
  Receive Date: 20120503
  Receipt Date: 20120425
  Transmission Date: 20120825
  Serious: Yes (Hospitalization)
  Sender: FDA-Public Use
  Company Number: GB-PFIZER INC-2012103379

PATIENT
  Age: 75 Year
  Sex: Male

DRUGS (7)
  1. ACETYLSALICYLIC ACID [Concomitant]
     Dosage: UNK
  2. ATORVASTATIN CALCIUM [Suspect]
     Dosage: UNK
  3. GLICLAZIDE [Concomitant]
     Dosage: UNK
  4. SITAGLIPTIN PHOSPHATE [Interacting]
     Indication: TYPE 2 DIABETES MELLITUS
     Dosage: UNK
  5. METFORMIN [Concomitant]
     Dosage: UNK
  6. RAMIPRIL [Concomitant]
     Dosage: UNK
  7. PIOGLITAZONE [Concomitant]
     Dosage: UNK

REACTIONS (2)
  - DRUG INTERACTION [None]
  - RHABDOMYOLYSIS [None]
